FAERS Safety Report 4639669-5 (Version None)
Quarter: 2005Q2

REPORT INFORMATION
  Report Type: 
  Country: None (occurrence: None)
  Receive Date: 20050415
  Receipt Date: 20050401
  Transmission Date: 20051028
  Serious: Yes (Hospitalization)
  Sender: FDA-Public Use
  Company Number: GXKR2005FR00568

PATIENT
  Age: 65 Year
  Sex: Male

DRUGS (3)
  1. SPIRONOLACTONE+ALTIZIDE (NGX) (ALTIZIDE, SPIRONOLACTONE) FILM-COATED T [Suspect]
     Indication: HYPERTENSION
     Dosage: 25/15 MG, QD, ORAL
     Route: 048
     Dates: end: 20040524
  2. TEGRETOL [Suspect]
     Indication: EPILEPSY
     Dosage: 600 MG, QD, ORAL
     Route: 048
     Dates: end: 20040524
  3. XATRAL [Concomitant]

REACTIONS (5)
  - CUTANEOUS LUPUS ERYTHEMATOSUS [None]
  - HYPERGAMMAGLOBULINAEMIA [None]
  - SKIN TEST POSITIVE [None]
  - SYSTEMIC LUPUS ERYTHEMATOSUS [None]
  - TOXIC SKIN ERUPTION [None]
